FAERS Safety Report 25114319 (Version 1)
Quarter: 2025Q1

REPORT INFORMATION
  Report Type: Report from Study
  Country: US (occurrence: US)
  Receive Date: 20250324
  Receipt Date: 20250324
  Transmission Date: 20250408
  Serious: Yes (Other)
  Sender: ALEXION PHARMACEUTICALS
  Company Number: US-ASTRAZENECA-202503USA014518US

PATIENT

DRUGS (1)
  1. OSIMERTINIB [Suspect]
     Active Substance: OSIMERTINIB
     Indication: Breast cancer female
     Dosage: 80 MILLIGRAM, QD

REACTIONS (3)
  - Mental impairment [Unknown]
  - General physical condition abnormal [Unknown]
  - Alopecia [Unknown]
